FAERS Safety Report 24183722 (Version 4)
Quarter: 2024Q3

REPORT INFORMATION
  Report Type: Spontaneous
  Country: US (occurrence: US)
  Receive Date: 20240807
  Receipt Date: 20240916
  Transmission Date: 20241016
  Serious: No
  Sender: PFIZER
  Company Number: US-PFIZER INC-202400227861

PATIENT
  Age: 14 Year
  Sex: Male
  Weight: 54.422 kg

DRUGS (2)
  1. GENOTROPIN [Suspect]
     Active Substance: SOMATROPIN
     Dosage: 2 MG, DAILY
  2. GENOTROPIN [Suspect]
     Active Substance: SOMATROPIN
     Dosage: 2.2 MG, DAILY
     Dates: start: 202309

REACTIONS (5)
  - Incorrect dose administered by device [Unknown]
  - Drug dose omission by device [Unknown]
  - Device leakage [Unknown]
  - Device mechanical issue [Unknown]
  - Device issue [Unknown]
